FAERS Safety Report 26075106 (Version 1)
Quarter: 2025Q4

REPORT INFORMATION
  Report Type: Spontaneous
  Country: US (occurrence: US)
  Receive Date: 20251121
  Receipt Date: 20251121
  Transmission Date: 20260118
  Serious: Yes (Life-Threatening, Hospitalization, Other)
  Sender: B. BRAUN MEDICAL INC.
  Company Number: None

PATIENT
  Age: 63 Year
  Sex: Male
  Weight: 62 kg

DRUGS (3)
  1. LIDOCAINE [Suspect]
     Active Substance: LIDOCAINE
     Indication: Analgesic therapy
     Dosage: LIDOCAINE 1% WITHOUT EPINEPHRINE WAS INADVERTENTLY DOSED AT 3?ML/KG INSTEAD OF THE INTENDED USUAL DOSE OF 3?MG/KG, RESULTING IN ADMINISTRATION OF 180 MILLILITERS OF DRUG, AN APPROXIMATELY 10-FOLD DOSING ERROR. IN TOTAL, THE PATIENT RECEIVED 1800?MG (APPROXIMATELY 29?MG/KG) OF LIDOCAINE OVER 1?MINUTE
  2. OXYCODONE [Concomitant]
     Active Substance: OXYCODONE
     Dosage: 75 MIN PRIOR TO PROCEDURE
  3. MORPHINE [Concomitant]
     Active Substance: MORPHINE
     Dosage: 45 MIN PRIOR TO PROCEDURE

REACTIONS (4)
  - Encephalopathy [Recovered/Resolved]
  - Local anaesthetic systemic toxicity [Recovered/Resolved]
  - Incorrect dose administered [Recovered/Resolved]
  - Accidental overdose [Recovered/Resolved]
